FAERS Safety Report 4633336-X (Version None)
Quarter: 2005Q2

REPORT INFORMATION
  Report Type: 
  Country: None (occurrence: None)
  Receive Date: 20050408
  Receipt Date: 20050325
  Transmission Date: 20051028
  Serious: Yes (Disabling)
  Sender: FDA-Public Use
  Company Number: 200502539

PATIENT
  Age: 58 Year
  Sex: Female

DRUGS (1)
  1. BOTULINUM TOXIN TYPE A [Suspect]
     Indication: SKIN WRINKLING
     Dosage: UNITS

REACTIONS (1)
  - DIPLOPIA [None]
